FAERS Safety Report 5828159-X (Version None)
Quarter: 2008Q3

REPORT INFORMATION
  Report Type: 
  Country: None (occurrence: None)
  Receive Date: 20080729
  Receipt Date: 20080721
  Transmission Date: 20090109
  Serious: Yes (Death, Hospitalization)
  Sender: FDA-Public Use
  Company Number: 028-C5013-07071632

PATIENT
  Age: 40 Year
  Sex: Male
  Weight: 70.8 kg

DRUGS (6)
  1. CC-5013 (LENALIDOMIDE) (CAPSULES) [Suspect]
     Indication: MULTIPLE MYELOMA
     Dosage: ORAL
     Route: 048
     Dates: start: 20070404, end: 20070620
  2. DEXAMETHASONE [Suspect]
     Indication: MULTIPLE MYELOMA
     Dosage: 4 MG
     Dates: start: 20070725, end: 20070727
  3. SULCRATE (SUCRALFATE) [Concomitant]
  4. CALCIMAR (CALCITONIN, PORCINE) [Concomitant]
  5. ZOPICLONE (ZOPICLONE) [Concomitant]
  6. ZANTAC [Concomitant]

REACTIONS (4)
  - ABDOMINAL DISTENSION [None]
  - ABDOMINAL PAIN [None]
  - BACK PAIN [None]
  - DYSURIA [None]
